FAERS Safety Report 7149310-8 (Version None)
Quarter: 2010Q4

REPORT INFORMATION
  Report Type: 
  Country: None (occurrence: None)
  Receive Date: 20101209
  Receipt Date: 20101130
  Transmission Date: 20110411
  Serious: Yes (Other)
  Sender: FDA-Public Use
  Company Number: US-PURDUE-USA-2010-0056592

PATIENT
  Sex: Male

DRUGS (3)
  1. OXYCONTIN [Suspect]
     Indication: PAIN
     Dosage: 120 MG, Q8H
     Route: 048
     Dates: start: 20101129
  2. OXYCONTIN [Suspect]
     Dosage: 160 MG, Q8H
     Route: 048
     Dates: start: 20100915, end: 20101015
  3. OXYCONTIN [Suspect]
     Dosage: 80 MG, SEE TEXT
     Route: 048
     Dates: start: 20100915, end: 20101015

REACTIONS (15)
  - ABDOMINAL PAIN UPPER [None]
  - ANXIETY [None]
  - APHAGIA [None]
  - BACK PAIN [None]
  - CONSTIPATION [None]
  - DRUG INEFFECTIVE [None]
  - FEELING ABNORMAL [None]
  - GENERAL PHYSICAL HEALTH DETERIORATION [None]
  - HEADACHE [None]
  - INSOMNIA [None]
  - MOBILITY DECREASED [None]
  - MUSCLE SPASMS [None]
  - NAUSEA [None]
  - PAIN [None]
  - PARAESTHESIA [None]
